FAERS Safety Report 5519273-7 (Version None)
Quarter: 2007Q4

REPORT INFORMATION
  Report Type: 
  Country: None (occurrence: None)
  Receive Date: 20071116
  Receipt Date: 20071105
  Transmission Date: 20080405
  Serious: Yes (Other)
  Sender: FDA-Public Use
  Company Number: JP-WYE-H01052407

PATIENT
  Age: 64 Year
  Sex: Male

DRUGS (1)
  1. AMIODARONE HCL [Suspect]
     Indication: VENTRICULAR TACHYCARDIA
     Dosage: UNKNOWN
     Route: 048
     Dates: start: 20020101, end: 20051108

REACTIONS (2)
  - HYPERTHYROIDISM [None]
  - THYROIDITIS [None]
